FAERS Safety Report 6300706-3 (Version None)
Quarter: 2009Q3

REPORT INFORMATION
  Report Type: 
  Country: None (occurrence: None)
  Receive Date: 20090807
  Receipt Date: 20090728
  Transmission Date: 20100115
  Serious: Yes (Other)
  Sender: FDA-Public Use
  Company Number: US-RANBAXY-2009RR-26012

PATIENT
  Age: 48 Year
  Sex: Female

DRUGS (6)
  1. EZETIMIBE [Suspect]
     Indication: HYPERLIPIDAEMIA
  2. FLUVASTATIN [Suspect]
     Indication: HYPERLIPIDAEMIA
  3. LOVASTATIN [Suspect]
     Indication: HYPERLIPIDAEMIA
  4. SIMVASTATIN [Suspect]
     Indication: HYPERLIPIDAEMIA
  5. VYTORIN [Suspect]
     Indication: HYPERLIPIDAEMIA
  6. UBIDECARENONE [Concomitant]

REACTIONS (1)
  - AMYOTROPHIC LATERAL SCLEROSIS [None]
